FAERS Safety Report 24435735 (Version 2)
Quarter: 2024Q4

REPORT INFORMATION
  Report Type: Spontaneous
  Country: FR (occurrence: FR)
  Receive Date: 20241015
  Receipt Date: 20241022
  Transmission Date: 20250115
  Serious: Yes (Congenital Anomaly, Other)
  Sender: pharmaAND
  Company Number: FR-Pharmaand-2024001030

PATIENT
  Sex: Male

DRUGS (3)
  1. PEGASYS [Suspect]
     Active Substance: PEGINTERFERON ALFA-2A
     Dosage: 90 ?G, 2X/WEEK
     Route: 064
     Dates: end: 20240812
  2. PEGASYS [Suspect]
     Active Substance: PEGINTERFERON ALFA-2A
     Dosage: 90 ?G
     Route: 063
  3. ASPIRIN [Concomitant]
     Active Substance: ASPIRIN
     Route: 064

REACTIONS (5)
  - Urachal abnormality [Unknown]
  - Naevus flammeus [Unknown]
  - Testicular disorder [Unknown]
  - Maternal exposure during pregnancy [Recovered/Resolved]
  - Maternal exposure during breast feeding [Recovered/Resolved]
